FAERS Safety Report 21035598 (Version 1)
Quarter: 2022Q3

REPORT INFORMATION
  Report Type: Spontaneous
  Country: US (occurrence: None)
  Receive Date: 20220701
  Receipt Date: 20220701
  Transmission Date: 20221027
  Serious: Yes (Other)
  Sender: FDA-Public Use
  Company Number: US-Merck Healthcare KGaA-9333440

PATIENT

DRUGS (1)
  1. EUTHYROX [Suspect]
     Active Substance: LEVOTHYROXINE SODIUM
     Indication: Product used for unknown indication

REACTIONS (17)
  - Hepatic cirrhosis [Recovering/Resolving]
  - Fatigue [Recovering/Resolving]
  - Decreased appetite [Recovering/Resolving]
  - Aspartate aminotransferase increased [Recovering/Resolving]
  - Alanine aminotransferase increased [Recovering/Resolving]
  - Dizziness [Recovering/Resolving]
  - Presyncope [Recovering/Resolving]
  - Hypoaesthesia [Recovering/Resolving]
  - Blood cholesterol increased [Recovering/Resolving]
  - Low density lipoprotein increased [Recovering/Resolving]
  - Blood triglycerides increased [Recovering/Resolving]
  - C-reactive protein increased [Recovering/Resolving]
  - White blood cell count increased [Recovering/Resolving]
  - Lymphocyte count increased [Recovering/Resolving]
  - Monocyte count increased [Recovering/Resolving]
  - Palpitations [Recovering/Resolving]
  - Blood thyroid stimulating hormone decreased [Recovered/Resolved]
